FAERS Safety Report 7251537-1 (Version None)
Quarter: 2011Q1

REPORT INFORMATION
  Report Type: 
  Country: None (occurrence: None)
  Receive Date: 20110128
  Receipt Date: 20110114
  Transmission Date: 20110831
  Serious: Yes (Other)
  Sender: FDA-Public Use
  Company Number: US-ELI_LILLY_AND_COMPANY-US201006005938

PATIENT
  Sex: Female

DRUGS (15)
  1. METOPROLOL [Concomitant]
  2. FORTEO [Suspect]
     Indication: OSTEOPOROSIS
     Dosage: 20 UG, DAILY (1/D)
     Dates: start: 20100429
  3. FISH OIL [Concomitant]
  4. STOOL SOFTENER [Concomitant]
  5. CALCIUM [Concomitant]
  6. POTASSIUM CHLORIDE [Concomitant]
  7. FORTEO [Suspect]
     Dosage: 20 UG, DAILY (1/D)
  8. CITRACAL + D [Concomitant]
  9. LASIX [Concomitant]
  10. FORTEO [Suspect]
     Dosage: 20 UG, DAILY (1/D)
  11. WARFARIN [Concomitant]
  12. VITAMIN D [Concomitant]
  13. LIPITOR [Concomitant]
  14. FORTEO [Suspect]
     Dosage: 20 UG, DAILY (1/D)
  15. ASPIRIN [Concomitant]
     Dosage: 81 MG, UNKNOWN

REACTIONS (9)
  - FALL [None]
  - CEREBROVASCULAR ACCIDENT [None]
  - FEELING ABNORMAL [None]
  - CONSTIPATION [None]
  - BACK PAIN [None]
  - HEART RATE INCREASED [None]
  - HYPOTENSION [None]
  - HEAD INJURY [None]
  - HEART RATE IRREGULAR [None]
